FAERS Safety Report 19658506 (Version 2)
Quarter: 2021Q3

REPORT INFORMATION
  Report Type: Report from Study
  Country: US (occurrence: US)
  Receive Date: 20210805
  Receipt Date: 20210821
  Transmission Date: 20211014
  Serious: Yes (Death, Life-Threatening, Other)
  Sender: FDA-Public Use
  Company Number: US-AUROBINDO-AUR-APL-2021-033136

PATIENT
  Age: 76 Year
  Sex: Male
  Weight: 81 kg

DRUGS (1)
  1. BELINOSTAT [Suspect]
     Active Substance: BELINOSTAT
     Indication: MYELODYSPLASTIC SYNDROME
     Dosage: UNK
     Route: 065
     Dates: start: 20200817

REACTIONS (7)
  - Blood alkaline phosphatase increased [Unknown]
  - Platelet count decreased [Unknown]
  - Anaemia [Unknown]
  - Fatigue [Unknown]
  - Death [Fatal]
  - Febrile neutropenia [Unknown]
  - Constipation [Unknown]
